FAERS Safety Report 5598534-X (Version None)
Quarter: 2008Q1

REPORT INFORMATION
  Report Type: 
  Country: None (occurrence: None)
  Receive Date: 20080122
  Receipt Date: 20080114
  Transmission Date: 20080703
  Serious: No
  Sender: FDA-Public Use
  Company Number: FR-ELI_LILLY_AND_COMPANY-FR200712004733

PATIENT
  Age: 71 Year
  Sex: Female
  Weight: 93 kg

DRUGS (11)
  1. FORTEO [Suspect]
     Indication: OSTEOPOROSIS
     Dosage: 20 UG, DAILY (1/D)
     Route: 058
     Dates: start: 20070604
  2. ENBREL [Concomitant]
     Indication: RHEUMATOID ARTHRITIS
     Dosage: 1 D/F, WEEKLY (1/W)
     Route: 058
  3. INEXIUM [Concomitant]
     Dosage: 40 MG, UNK
     Route: 048
  4. LEVOTHYROX [Concomitant]
     Dosage: 100 UNK, UNK
     Route: 048
  5. ACEBUTOLOL [Concomitant]
  6. LASIX [Concomitant]
  7. CORTANCYL [Concomitant]
     Dosage: 2 MG, UNK
     Route: 048
  8. CLONAZEPAM [Concomitant]
  9. FLUOXETINE [Concomitant]
  10. ALLOPURINOL [Concomitant]
  11. TRAMADOL HCL [Concomitant]

REACTIONS (1)
  - ULNA FRACTURE [None]
